FAERS Safety Report 19672452 (Version 5)
Quarter: 2021Q3

REPORT INFORMATION
  Report Type: Spontaneous
  Country: US (occurrence: US)
  Receive Date: 20210808
  Receipt Date: 20210908
  Transmission Date: 20211014
  Serious: No
  Sender: FDA-Public Use
  Company Number: US-009507513-2108USA001045

PATIENT
  Age: 70 Year
  Sex: Female

DRUGS (6)
  1. BELSOMRA [Suspect]
     Active Substance: SUVOREXANT
     Indication: INSOMNIA
     Dosage: 10 MG NIGHTLY
     Route: 048
     Dates: start: 2021
  2. TIZANIDINE. [Concomitant]
     Active Substance: TIZANIDINE
     Dosage: 2 MG ONCE A DAY
  3. BELSOMRA [Suspect]
     Active Substance: SUVOREXANT
     Indication: INSOMNIA
     Dosage: 5 MILLIGRAM, HS
     Route: 048
     Dates: start: 2021
  4. BELSOMRA [Suspect]
     Active Substance: SUVOREXANT
     Indication: INSOMNIA
     Dosage: 20 MG TABLET CUTTED IN HALF
     Route: 048
     Dates: start: 2021
  5. LOSARTAN POTASSIUM. [Concomitant]
     Active Substance: LOSARTAN POTASSIUM
     Dosage: SOMEWHERE BETWEEN 50 AND 100 MG
  6. BELSOMRA [Suspect]
     Active Substance: SUVOREXANT
     Dosage: 1 AT BEDTIME
     Route: 048
     Dates: start: 2021, end: 2021

REACTIONS (13)
  - Prescription drug used without a prescription [Unknown]
  - Drug ineffective [Not Recovered/Not Resolved]
  - Product supply issue [Unknown]
  - Sedation [Recovered/Resolved]
  - Product colour issue [Unknown]
  - Malaise [Unknown]
  - Product compounding quality issue [Unknown]
  - Fatigue [Unknown]
  - Product quality issue [Unknown]
  - Wrong technique in product usage process [Unknown]
  - Asthenia [Not Recovered/Not Resolved]
  - Product dose omission issue [Unknown]
  - Therapeutic product effect increased [Recovered/Resolved]

NARRATIVE: CASE EVENT DATE: 2021
